FAERS Safety Report 8827682 (Version 1)
Quarter: 2012Q4

REPORT INFORMATION
  Report Type: 
  Country: US (occurrence: US)
  Receive Date: 20121008
  Receipt Date: 20121008
  Transmission Date: 20130627
  Serious: No
  Sender: FDA-Public Use
  Company Number: US-PFIZER INC-2012244114

PATIENT
  Age: 41 Year
  Sex: Male
  Weight: 96.6 kg

DRUGS (1)
  1. PACLITAXEL [Suspect]
     Dosage: UNK

REACTIONS (1)
  - Chest discomfort [Unknown]
